FAERS Safety Report 9378507 (Version 2)
Quarter: 2013Q4

REPORT INFORMATION
  Report Type: Spontaneous
  Country: AU (occurrence: AU)
  Receive Date: 20130702
  Receipt Date: 20131223
  Transmission Date: 20140711
  Serious: Yes (Hospitalization)
  Sender: FDA-Public Use
  Company Number: AU-B.I. PHARMACEUTICALS,INC./RIDGEFIELD-2013-AU-00767AU

PATIENT
  Age: 79 Year
  Sex: Male

DRUGS (6)
  1. TRAJENTA [Suspect]
     Indication: DIABETES MELLITUS
     Dosage: 5 MG
     Dates: start: 20130129, end: 20130204
  2. ACCUPRIL [Concomitant]
  3. DIABEX [Concomitant]
  4. ISCOVER [Concomitant]
  5. ISOPTIN [Concomitant]
  6. LIPITOR [Concomitant]

REACTIONS (4)
  - Gastric ulcer [Recovered/Resolved]
  - Haematemesis [Recovered/Resolved]
  - Abdominal pain upper [Recovered/Resolved]
  - Dyspepsia [Recovered/Resolved]
